FAERS Safety Report 9328296 (Version 2)
Quarter: 2013Q4

REPORT INFORMATION
  Report Type: Spontaneous
  Country: BR (occurrence: BR)
  Receive Date: 20130604
  Receipt Date: 20131023
  Transmission Date: 20140711
  Serious: Yes (Other)
  Sender: FDA-Public Use
  Company Number: BR-BRISTOL-MYERS SQUIBB COMPANY-18952085

PATIENT
  Age: 72 Year
  Sex: Female
  Weight: 66 kg

DRUGS (8)
  1. ORENCIA [Suspect]
     Indication: RHEUMATOID ARTHRITIS
  2. ACTEMRA [Suspect]
     Dosage: INTERRUPTED ON JAN2012,RETARTED ON APR2013,INTERRUPTED 03MAY2013
     Dates: start: 20120712
  3. ENBREL [Concomitant]
  4. HUMIRA [Concomitant]
  5. ARAVA [Concomitant]
  6. REMICADE [Concomitant]
  7. METHOTREXATE [Concomitant]
  8. RITUXIMAB [Concomitant]

REACTIONS (3)
  - Small intestine carcinoma [Recovered/Resolved]
  - Arthropathy [Recovering/Resolving]
  - Pain in extremity [Not Recovered/Not Resolved]
